FAERS Safety Report 6235206-2 (Version None)
Quarter: 2009Q2

REPORT INFORMATION
  Report Type: 
  Country: None (occurrence: None)
  Receive Date: 20090618
  Receipt Date: 20090611
  Transmission Date: 20091009
  Serious: Yes (Hospitalization)
  Sender: FDA-Public Use
  Company Number: US-GILEAD-2008-0019665

PATIENT
  Sex: Female

DRUGS (10)
  1. LETAIRIS [Suspect]
     Indication: PULMONARY ARTERIAL HYPERTENSION
     Route: 048
     Dates: start: 20080814
  2. LETAIRIS [Suspect]
     Route: 048
  3. FUROSEMIDE [Concomitant]
  4. NORVASC [Concomitant]
  5. CARVEDILOL [Concomitant]
  6. CILOSTAZOL [Concomitant]
  7. INDOMETHACIN [Concomitant]
  8. INSULIN [Concomitant]
  9. RENAGEL [Concomitant]
  10. ASPIRIN [Concomitant]

REACTIONS (3)
  - OEDEMA [None]
  - RENAL FAILURE ACUTE [None]
  - RIGHT VENTRICULAR FAILURE [None]
